FAERS Safety Report 11159067 (Version 1)
Quarter: 2015Q2

REPORT INFORMATION
  Report Type: Report from Study
  Country: PR (occurrence: PR)
  Receive Date: 20150603
  Receipt Date: 20150603
  Transmission Date: 20150821
  Serious: Yes (Hospitalization, Other)
  Sender: FDA-Public Use
  Company Number: PR-ABBVIE-15K-131-1399700-00

PATIENT
  Age: 68 Year
  Sex: Male

DRUGS (1)
  1. HUMIRA [Suspect]
     Active Substance: ADALIMUMAB
     Indication: PSORIATIC ARTHROPATHY
     Route: 058
     Dates: end: 20150502

REACTIONS (6)
  - Pulmonary oedema [Unknown]
  - Testicular oedema [Unknown]
  - Decreased appetite [Unknown]
  - Leg amputation [Unknown]
  - Pneumonitis [Unknown]
  - Orchitis noninfective [Unknown]

NARRATIVE: CASE EVENT DATE: 20150512
